FAERS Safety Report 7741542-0 (Version None)
Quarter: 2011Q3

REPORT INFORMATION
  Report Type: 
  Country: None (occurrence: None)
  Receive Date: 20110909
  Receipt Date: 20110829
  Transmission Date: 20111222
  Serious: Yes (Other)
  Sender: FDA-Public Use
  Company Number: US-GILEAD-2011-0043349

PATIENT
  Sex: Female

DRUGS (9)
  1. PREVACID [Concomitant]
     Indication: GASTROOESOPHAGEAL REFLUX DISEASE
     Dates: start: 20110601
  2. XOPENEX [Concomitant]
     Indication: BRONCHIECTASIS
  3. AZTREONAM [Suspect]
     Indication: BRONCHIECTASIS
     Route: 055
     Dates: start: 20110628, end: 20110823
  4. XOPENEX [Concomitant]
     Indication: CHRONIC OBSTRUCTIVE PULMONARY DISEASE
     Dates: start: 20050510
  5. ASMANEX TWISTHALER [Concomitant]
     Indication: CHRONIC OBSTRUCTIVE PULMONARY DISEASE
     Dates: start: 20060101
  6. ELAVIL [Concomitant]
     Indication: INSOMNIA
     Dates: start: 20010101
  7. ATROVENT [Concomitant]
     Indication: CHRONIC OBSTRUCTIVE PULMONARY DISEASE
     Dates: start: 20050510
  8. ATROVENT [Concomitant]
     Indication: BRONCHIECTASIS
  9. CARDIZEM [Concomitant]
     Indication: TACHYCARDIA
     Dates: start: 20060101

REACTIONS (1)
  - HYPERSENSITIVITY [None]
